FAERS Safety Report 5811556-6 (Version None)
Quarter: 2008Q3

REPORT INFORMATION
  Report Type: 
  Country: None (occurrence: None)
  Receive Date: 20080716
  Receipt Date: 20080708
  Transmission Date: 20090109
  Serious: Yes (Other)
  Sender: FDA-Public Use
  Company Number: JP-MERCK-0807USA01886

PATIENT
  Age: 81 Year
  Sex: Female

DRUGS (9)
  1. PEPCID RPD [Suspect]
     Route: 048
  2. DEPAS [Suspect]
     Route: 048
     Dates: end: 20080707
  3. MAALOX [Concomitant]
     Route: 048
  4. MICARDIS [Concomitant]
     Route: 048
  5. DOGMATYL [Concomitant]
     Route: 048
  6. ITOROL [Concomitant]
     Route: 048
  7. FRANDOL [Concomitant]
     Route: 048
  8. TANATRIL [Concomitant]
     Route: 048
  9. TORSEMIDE [Suspect]
     Route: 048
     Dates: end: 20080707

REACTIONS (1)
  - RHABDOMYOLYSIS [None]
